FAERS Safety Report 10129350 (Version 1)
Quarter: 2014Q2

REPORT INFORMATION
  Report Type: Spontaneous
  Country: US (occurrence: None)
  Receive Date: 20140424
  Receipt Date: 20140424
  Transmission Date: 20141212
  Serious: Yes (Hospitalization)
  Sender: FDA-Public Use
  Company Number: KAD201404-000424

PATIENT
  Age: 59 Year
  Sex: Female

DRUGS (6)
  1. ANASTROZOLE (ANASTROZOLE) [Suspect]
     Indication: INTRADUCTAL PROLIFERATIVE BREAST LESION
  2. ANASTROZOLE (ANASTROZOLE) [Suspect]
     Indication: METASTASES TO BONE
  3. DENOSUMAB (DENOSUMAB) (RANMARK)) [Suspect]
     Indication: INTRADUCTAL PROLIFERATIVE BREAST LESION
  4. DENOSUMAB (DENOSUMAB) (RANMARK)) [Suspect]
     Indication: METASTASES TO BONE
  5. DOCETAXEL (DOCETAXEL) [Suspect]
     Indication: INTRADUCTAL PROLIFERATIVE BREAST LESION
  6. DOCETAXEL (DOCETAXEL) [Suspect]
     Indication: METASTASES TO BONE

REACTIONS (3)
  - Lacrimation increased [None]
  - Eyelid oedema [None]
  - Vision blurred [None]
